FAERS Safety Report 14624639 (Version 3)
Quarter: 2018Q2

REPORT INFORMATION
  Report Type: Report from Study
  Country: NL (occurrence: NL)
  Receive Date: 20180312
  Receipt Date: 20180418
  Transmission Date: 20180711
  Serious: Yes (Other)
  Sender: FDA-Public Use
  Company Number: NL-BRISTOL-MYERS SQUIBB COMPANY-BMS-2018-021527

PATIENT
  Age: 19 Year
  Sex: Female
  Weight: 69 kg

DRUGS (6)
  1. LIDOCAINE/PRILOCAINE [Concomitant]
     Active Substance: LIDOCAINE\PRILOCAINE
     Indication: PRODUCT USED FOR UNKNOWN INDICATION
     Dosage: 5 G, UNK
     Route: 065
     Dates: start: 20180212
  2. BRENTUXIMAB VEDOTIN [Suspect]
     Active Substance: BRENTUXIMAB VEDOTIN
     Indication: HODGKIN^S DISEASE
     Dosage: 126 MG, UNK
     Route: 042
     Dates: start: 20180212, end: 20180212
  3. BRENTUXIMAB VEDOTIN [Suspect]
     Active Substance: BRENTUXIMAB VEDOTIN
     Indication: PRODUCT USED FOR UNKNOWN INDICATION
     Dosage: 75 ML, UNK
     Route: 042
     Dates: start: 20180305, end: 20180305
  4. NIVOLUMAB [Suspect]
     Active Substance: NIVOLUMAB
     Indication: HODGKIN^S DISEASE
     Dosage: 210 MG, UNK
     Route: 042
     Dates: start: 20180219, end: 20180219
  5. FLUTICASON [Concomitant]
     Active Substance: FLUTICASONE
     Indication: PRODUCT USED FOR UNKNOWN INDICATION
     Dosage: 1 DF, UNK
     Route: 065
     Dates: start: 20180227
  6. GRANISETRON [Concomitant]
     Active Substance: GRANISETRON
     Indication: PRODUCT USED FOR UNKNOWN INDICATION
     Dosage: 4 MG, UNK
     Route: 065
     Dates: start: 20180212

REACTIONS (1)
  - Hypersensitivity [Recovered/Resolved]

NARRATIVE: CASE EVENT DATE: 20180305
